FAERS Safety Report 10276829 (Version 5)
Quarter: 2016Q4

REPORT INFORMATION
  Report Type: Spontaneous
  Country: JP (occurrence: JP)
  Receive Date: 20140703
  Receipt Date: 20161221
  Transmission Date: 20170206
  Serious: Yes (Life-Threatening, Hospitalization)
  Sender: FDA-Public Use
  Company Number: JP-TEVA-492182ISR

PATIENT
  Age: 78 Year
  Sex: Male

DRUGS (6)
  1. FILGRASTIM BS INJ. NK (FILGRASTIM [GENETICAL RECOMBINATION]) [Suspect]
     Active Substance: FILGRASTIM
     Indication: MYELODYSPLASTIC SYNDROME
     Dosage: 75 MICROGRAM/M2 DAILY;
     Route: 058
     Dates: start: 20140418, end: 20140430
  2. FILGRASTIM BS INJ. NK (FILGRASTIM [GENETICAL RECOMBINATION]) [Suspect]
     Active Substance: FILGRASTIM
     Indication: NEUTROPENIA
     Dosage: 75 MICROGRAM/BODY
     Route: 058
     Dates: start: 20140515, end: 20140519
  3. PREDONINE [Concomitant]
     Active Substance: PREDNISOLONE\PREDNISOLONE ACETATE\PREDNISOLONE SODIUM SUCCINATE
     Indication: RHEUMATOID ARTHRITIS
     Dosage: 2 MILLIGRAM DAILY;
     Route: 048
     Dates: start: 20140408, end: 20140519
  4. VIDAZA [Concomitant]
     Active Substance: AZACITIDINE
     Indication: MYELODYSPLASTIC SYNDROME
     Dosage: 100 MILLIGRAM DAILY;
     Route: 042
     Dates: start: 20140508, end: 20140514
  5. VIDAZA [Concomitant]
     Active Substance: AZACITIDINE
     Dosage: 100 MILLIGRAM DAILY;
     Route: 042
     Dates: start: 20140409, end: 20140415
  6. NABOAL SR [Concomitant]
     Active Substance: DICLOFENAC SODIUM
     Indication: RHEUMATOID ARTHRITIS
     Dosage: 75 MILLIGRAM DAILY;
     Route: 048
     Dates: start: 20140408, end: 20140519

REACTIONS (2)
  - Acute kidney injury [Not Recovered/Not Resolved]
  - Febrile neutropenia [Not Recovered/Not Resolved]

NARRATIVE: CASE EVENT DATE: 20140519
